FAERS Safety Report 6892989-6 (Version None)
Quarter: 2010Q3

REPORT INFORMATION
  Report Type: 
  Country: None (occurrence: None)
  Receive Date: 20100731
  Receipt Date: 20081216
  Transmission Date: 20110219
  Serious: Yes (Other)
  Sender: FDA-Public Use
  Company Number: US-PFIZER INC-2008085445

PATIENT
  Sex: Female

DRUGS (2)
  1. FLAGYL [Suspect]
     Dates: start: 20080601, end: 20080601
  2. CIPROFLOXACIN [Concomitant]

REACTIONS (1)
  - NEUROPATHY PERIPHERAL [None]
